FAERS Safety Report 4678979-2 (Version None)
Quarter: 2005Q2

REPORT INFORMATION
  Report Type: 
  Country: None (occurrence: None)
  Receive Date: 20050531
  Receipt Date: 20050525
  Transmission Date: 20051028
  Serious: Yes (Other)
  Sender: FDA-Public Use
  Company Number: A0560126A

PATIENT
  Sex: Male

DRUGS (5)
  1. ZIAGEN [Suspect]
     Indication: HIV INFECTION
     Dosage: ORAL
     Route: 048
  2. KALETRA [Concomitant]
  3. TRUVADA [Concomitant]
  4. ASPIRIN + CODEINE [Concomitant]
  5. TRIAMCINOLONE ACETONIDE [Concomitant]

REACTIONS (4)
  - ABDOMINAL DISCOMFORT [None]
  - FAT ATROPHY [None]
  - FAT TISSUE INCREASED [None]
  - GASTROOESOPHAGEAL REFLUX DISEASE [None]
